FAERS Safety Report 7179010-X (Version None)
Quarter: 2010Q4

REPORT INFORMATION
  Report Type: 
  Country: None (occurrence: None)
  Receive Date: 20101221
  Receipt Date: 20101214
  Transmission Date: 20110411
  Serious: Yes (Death)
  Sender: FDA-Public Use
  Company Number: PHHY2010DE76363

PATIENT
  Sex: Male
  Weight: 168 kg

DRUGS (18)
  1. ALISKIREN ALI+ [Suspect]
     Indication: HYPERTENSION
     Dosage: UNK
     Dates: start: 20081110
  2. BETA BLOCKING AGENTS [Concomitant]
  3. DIURETICS [Concomitant]
  4. VASODILATOR [Concomitant]
  5. ANTIADRENERGIC AGENTS, CENTRALLY ACTING [Concomitant]
  6. OTHER ANTIHYPERTENSIVES [Concomitant]
  7. ANTIPLATELET (NSAR) [Concomitant]
  8. THIENOPYRIDINE [Concomitant]
  9. ANTICOAGULANTS [Concomitant]
  10. STATINE [Concomitant]
  11. INSULIN [Concomitant]
  12. METOPROLOL [Concomitant]
     Dosage: 190 MG/D
     Dates: start: 20040906
  13. TORSEMIDE [Concomitant]
     Dosage: 100 MG/D
     Dates: start: 20041205
  14. PENTAERYTHRITOL TETRANITRATE [Concomitant]
     Dosage: 80 MG/D
     Dates: start: 20090120
  15. MOXONIDINE [Concomitant]
     Dosage: 0.6 MG/D
     Dates: start: 20050906
  16. ACETYLSALICYLIC ACID [Concomitant]
     Dosage: 100 MG/D
     Dates: start: 20020308
  17. PLAVIX [Concomitant]
     Dosage: 75 MG/D
     Dates: start: 20090120
  18. SIMVASTATIN [Concomitant]
     Dosage: 20 MG/D
     Dates: start: 20020318

REACTIONS (3)
  - ACUTE MYOCARDIAL INFARCTION [None]
  - BLOOD CREATININE INCREASED [None]
  - ELECTROCARDIOGRAM QRS COMPLEX PROLONGED [None]
